FAERS Safety Report 4268094-4 (Version None)
Quarter: 2004Q1

REPORT INFORMATION
  Report Type: 
  Country: None (occurrence: None)
  Receive Date: 20040109
  Receipt Date: 20040109
  Transmission Date: 20041129
  Serious: Yes (Life-Threatening, Hospitalization)
  Sender: FDA-Public Use
  Company Number: None

PATIENT
  Age: 61 Year
  Sex: Male
  Weight: 68.5 kg

DRUGS (2)
  1. VORICONAZXOLE 200 MG ROERIG [Suspect]
     Indication: ASPERGILLOSIS
     Dosage: 200 MG BID ORAL
     Route: 048
     Dates: start: 20030415, end: 20030421
  2. BACTRIM DS [Suspect]
     Indication: PROPHYLAXIS
     Dosage: 1 TAB MOWEFR ORAL
     Route: 048
     Dates: start: 20030328, end: 20030422

REACTIONS (5)
  - ALANINE AMINOTRANSFERASE INCREASED [None]
  - ASPARTATE AMINOTRANSFERASE INCREASED [None]
  - DEPRESSED LEVEL OF CONSCIOUSNESS [None]
  - HEPATIC FAILURE [None]
  - JAUNDICE [None]
